FAERS Safety Report 9368891 (Version 1)
Quarter: 2013Q2

REPORT INFORMATION
  Report Type: Spontaneous
  Country: US (occurrence: None)
  Receive Date: 20130621
  Receipt Date: 20130621
  Transmission Date: 20140414
  Serious: Yes (Hospitalization, Other)
  Sender: FDA-Public Use
  Company Number: 148689

PATIENT
  Age: 10 Year
  Sex: Male

DRUGS (2)
  1. CYTARABINE [Suspect]
     Indication: B PRECURSOR TYPE ACUTE LEUKAEMIA
     Dosage: INTRATHECAL INJECTION
  2. DAUNORUBICIN [Suspect]
     Indication: B PRECURSOR TYPE ACUTE LEUKAEMIA

REACTIONS (3)
  - Epilepsy [None]
  - No therapeutic response [None]
  - Cerebral haemorrhage [None]
